FAERS Safety Report 14497624 (Version 2)
Quarter: 2018Q1

REPORT INFORMATION
  Report Type: Spontaneous
  Country: RU (occurrence: RU)
  Receive Date: 20180207
  Receipt Date: 20180216
  Transmission Date: 20180509
  Serious: Yes (Other)
  Sender: FDA-Public Use
  Company Number: PHHY2018RU014596

PATIENT
  Age: 32 Year
  Sex: Male

DRUGS (2)
  1. TOBRADEX [Suspect]
     Active Substance: DEXAMETHASONE\TOBRAMYCIN
     Indication: POSTOPERATIVE CARE
     Dosage: UNK
     Route: 047
  2. ARTELAC SPLASH [Suspect]
     Active Substance: HYALURONATE SODIUM
     Indication: POSTOPERATIVE CARE
     Dosage: UNK
     Route: 047

REACTIONS (4)
  - Loss of consciousness [Recovered/Resolved]
  - Confusional state [Unknown]
  - Amnesia [Unknown]
  - Muscular weakness [Recovered/Resolved]

NARRATIVE: CASE EVENT DATE: 20180125
